FAERS Safety Report 8960258 (Version 1)
Quarter: 2012Q4

REPORT INFORMATION
  Report Type: 
  Country: NL (occurrence: NL)
  Receive Date: 20121212
  Receipt Date: 20121212
  Transmission Date: 20130627
  Serious: Yes (Other)
  Sender: FDA-Public Use
  Company Number: NL-PFIZER INC-2012130861

PATIENT
  Sex: Male

DRUGS (2)
  1. RELPAX [Suspect]
     Dosage: 40 mg, as needed
     Route: 064
     Dates: start: 20111231, end: 20120306
  2. IMIGRAN [Suspect]
     Dosage: UNK
     Route: 064
     Dates: start: 20111210, end: 20120216

REACTIONS (2)
  - Maternal exposure timing unspecified [Unknown]
  - Meconium in amniotic fluid [Unknown]
